FAERS Safety Report 11778176 (Version 1)
Quarter: 2015Q4

REPORT INFORMATION
  Report Type: Spontaneous
  Country: US (occurrence: US)
  Receive Date: 20151125
  Receipt Date: 20151125
  Transmission Date: 20160304
  Serious: Yes (Other)
  Sender: FDA-Public Use
  Company Number: US-MYLANLABS-2015M1041869

PATIENT

DRUGS (2)
  1. LIDOCAINE. [Suspect]
     Active Substance: LIDOCAINE
     Indication: PRODUCT USED FOR UNKNOWN INDICATION
     Dosage: 50MG
     Route: 042
  2. BENZOCAINE. [Suspect]
     Active Substance: BENZOCAINE
     Indication: TOOTHACHE
     Route: 061

REACTIONS (2)
  - Respiratory failure [Recovered/Resolved]
  - Methaemoglobinaemia [Recovering/Resolving]
